FAERS Safety Report 6225746-4 (Version None)
Quarter: 2009Q2

REPORT INFORMATION
  Report Type: 
  Country: None (occurrence: None)
  Receive Date: 20090612
  Receipt Date: 20090421
  Transmission Date: 20091009
  Serious: No
  Sender: FDA-Public Use
  Company Number: US-ABBOTT-09P-163-0569727-00

PATIENT
  Sex: Female
  Weight: 74.91 kg

DRUGS (1)
  1. HUMIRA [Suspect]
     Indication: RHEUMATOID ARTHRITIS
     Dates: start: 20070301

REACTIONS (7)
  - CHILLS [None]
  - COLITIS COLLAGENOUS [None]
  - DIARRHOEA [None]
  - FLANK PAIN [None]
  - NEPHROLITHIASIS [None]
  - PYREXIA [None]
  - VOMITING [None]
